FAERS Safety Report 8986845 (Version 1)
Quarter: 2012Q4

REPORT INFORMATION
  Report Type: 
  Country: GB (occurrence: GB)
  Receive Date: 20121226
  Receipt Date: 20121226
  Transmission Date: 20130627
  Serious: Yes (Other)
  Sender: FDA-Public Use
  Company Number: GB-WATSON-2012-22552

PATIENT
  Sex: Female

DRUGS (3)
  1. RISPERIDONE (UNKNOWN) [Suspect]
     Indication: PRODUCT USED FOR UNKNOWN INDICATION
     Dosage: 2 mg, bid
     Route: 065
  2. RISPERIDONE (UNKNOWN) [Suspect]
     Dosage: Increased from 2mg when reactions started3 mg, bid
     Route: 065
  3. SEROQUEL [Concomitant]
     Indication: PRODUCT USED FOR UNKNOWN INDICATION
     Dosage: unknown
     Route: 065

REACTIONS (2)
  - Restless legs syndrome [Not Recovered/Not Resolved]
  - Agitation [Not Recovered/Not Resolved]
